FAERS Safety Report 13299847 (Version 2)
Quarter: 2017Q2

REPORT INFORMATION
  Report Type: Spontaneous
  Country: US (occurrence: US)
  Receive Date: 20170306
  Receipt Date: 20170502
  Transmission Date: 20170830
  Serious: No
  Sender: FDA-Public Use
  Company Number: US-ACTELION-A-NJ2017-150660

PATIENT
  Age: 73 Year
  Sex: Male

DRUGS (1)
  1. VALCHLOR [Suspect]
     Active Substance: MECHLORETHAMINE
     Indication: MYCOSIS FUNGOIDES
     Dosage: UNK, QD
     Route: 061
     Dates: start: 20140301

REACTIONS (3)
  - Gastroenteritis viral [Unknown]
  - Nausea [Unknown]
  - Therapy cessation [Unknown]

NARRATIVE: CASE EVENT DATE: 20170216
